FAERS Safety Report 17124924 (Version 1)
Quarter: 2019Q4

REPORT INFORMATION
  Report Type: Spontaneous
  Country: JP (occurrence: JP)
  Receive Date: 20191206
  Receipt Date: 20191206
  Transmission Date: 20200122
  Serious: Yes (Other)
  Sender: FDA-Public Use
  Company Number: JP-BAYER-2019-215772

PATIENT
  Age: 8 Decade
  Sex: Female

DRUGS (3)
  1. LENVATINIB MESILATE [Suspect]
     Active Substance: LENVATINIB MESYLATE
     Indication: HEPATOCELLULAR CARCINOMA
     Dosage: 8 MG AND 4 MG ADMINISTERED EVERY OTHER DAY
  2. NEXAVAR [Suspect]
     Active Substance: SORAFENIB
     Indication: HEPATOCELLULAR CARCINOMA
     Dosage: DAILY DOSE 400 MG
  3. LENVATINIB MESILATE [Suspect]
     Active Substance: LENVATINIB MESYLATE
     Indication: HEPATOCELLULAR CARCINOMA
     Dosage: DAILY DOSE 8 MG

REACTIONS (1)
  - Rheumatoid arthritis [None]
